FAERS Safety Report 5796817-1 (Version None)
Quarter: 2008Q2

REPORT INFORMATION
  Report Type: 
  Country: None (occurrence: None)
  Receive Date: 20080630
  Receipt Date: 20080630
  Transmission Date: 20081010
  Serious: Yes (Hospitalization)
  Sender: FDA-Public Use
  Company Number: None

PATIENT
  Age: 72 Year
  Sex: Male
  Weight: 154.41 kg

DRUGS (1)
  1. DOXYCYCLINE HCL [Suspect]
     Dosage: 100 MG BID PO
     Route: 048
     Dates: start: 20040928, end: 20080529

REACTIONS (1)
  - HAEMATOCHEZIA [None]
